FAERS Safety Report 24646893 (Version 2)
Quarter: 2024Q4

REPORT INFORMATION
  Report Type: Spontaneous
  Country: CA (occurrence: CA)
  Receive Date: 20241121
  Receipt Date: 20241205
  Transmission Date: 20250115
  Serious: Yes (Life-Threatening, Hospitalization, Other)
  Sender: TEVA
  Company Number: CA-TEVA-VS-3265006

PATIENT
  Age: 7 Month
  Sex: Female

DRUGS (13)
  1. VINCRISTINE [Suspect]
     Active Substance: VINCRISTINE
     Indication: Lymphangioma
     Route: 042
  2. BLEOMYCIN [Suspect]
     Active Substance: BLEOMYCIN SULFATE
     Indication: Pleural effusion
     Dosage: SCLEROTHERAPY WITH BLEOMYCIN
     Route: 065
  3. INTERFERON [Suspect]
     Active Substance: INTERFERON
     Indication: Lymphangioma
     Route: 042
  4. SIROLIMUS [Suspect]
     Active Substance: SIROLIMUS
     Indication: Lymphangioma
     Route: 048
  5. SIROLIMUS [Suspect]
     Active Substance: SIROLIMUS
     Indication: Lymphangioma
     Route: 048
  6. SIROLIMUS [Suspect]
     Active Substance: SIROLIMUS
     Indication: Lymphangioma
     Route: 048
  7. SIROLIMUS [Suspect]
     Active Substance: SIROLIMUS
     Indication: Lymphangioma
     Dosage: INCREASED DOSE
     Route: 048
  8. TRAMETINIB [Suspect]
     Active Substance: TRAMETINIB
     Indication: Lymphangioma
     Route: 065
  9. OCTREOTIDE [Suspect]
     Active Substance: OCTREOTIDE
     Indication: Pleural effusion
     Dosage: PERFUSIONS
     Route: 065
  10. PROPRANOLOL [Suspect]
     Active Substance: PROPRANOLOL HYDROCHLORIDE
     Indication: Lymphangioma
     Route: 048
  11. PREDNISONE [Suspect]
     Active Substance: PREDNISONE
     Indication: Lymphangioma
     Route: 042
  12. PREDNISONE [Suspect]
     Active Substance: PREDNISONE
     Indication: Lymphangioma
     Route: 048
  13. DOXYCYCLINE [Suspect]
     Active Substance: DOXYCYCLINE
     Indication: Pleural effusion
     Dosage: PLEURODESIS WITH DOXYCYCLINE
     Route: 065

REACTIONS (13)
  - Adrenal suppression [Recovering/Resolving]
  - Infection [Recovering/Resolving]
  - Proteinuria [Recovering/Resolving]
  - Glomerulosclerosis [Recovering/Resolving]
  - Drug ineffective [Unknown]
  - Cytomegalovirus infection [Recovered/Resolved]
  - Renal disorder [Recovering/Resolving]
  - Neuropathy peripheral [Recovering/Resolving]
  - Pulmonary toxicity [Recovered/Resolved]
  - Cushingoid [Recovering/Resolving]
  - Cataract subcapsular [Recovering/Resolving]
  - Osteoporosis [Recovering/Resolving]
  - Hypertension [Recovering/Resolving]
